FAERS Safety Report 18466327 (Version 3)
Quarter: 2020Q4

REPORT INFORMATION
  Report Type: Spontaneous
  Country: US (occurrence: US)
  Receive Date: 20201104
  Receipt Date: 20201123
  Transmission Date: 20210114
  Serious: Yes (Other)
  Sender: FDA-Public Use
  Company Number: US-ROCHE-2690135

PATIENT
  Age: 66 Year
  Sex: Male
  Weight: 64.92 kg

DRUGS (12)
  1. HYDROXYCHLOROQUINE [Concomitant]
     Active Substance: HYDROXYCHLOROQUINE
     Indication: ARTHRALGIA
     Route: 048
     Dates: start: 202005
  2. ATORVASTATIN [Concomitant]
     Active Substance: ATORVASTATIN
     Indication: BLOOD CHOLESTEROL INCREASED
     Dosage: ONGOING: YES
     Route: 048
     Dates: start: 1995
  3. DILTIAZEM. [Concomitant]
     Active Substance: DILTIAZEM
     Indication: MULTIPLE SCLEROSIS
  4. LEVOTHYROXINE. [Concomitant]
     Active Substance: LEVOTHYROXINE
     Indication: HYPOTHYROIDISM
     Dosage: 50 MCG, ONGOING: YES
     Route: 048
     Dates: start: 201908
  5. ACTEMRA [Suspect]
     Active Substance: TOCILIZUMAB
  6. COENZYME Q10 [Concomitant]
     Active Substance: DIETARY SUPPLEMENT\UBIDECARENONE
     Indication: BLOOD CHOLESTEROL INCREASED
     Route: 048
     Dates: start: 1995
  7. ACTEMRA [Suspect]
     Active Substance: TOCILIZUMAB
     Indication: SYSTEMIC SCLERODERMA
     Dosage: PRE-FILLED SYRINGE; 162 MG/ 0.9 ML
     Route: 058
     Dates: start: 20200802
  8. ACTEMRA [Suspect]
     Active Substance: TOCILIZUMAB
  9. CELLCEPT [Suspect]
     Active Substance: MYCOPHENOLATE MOFETIL\MYCOPHENOLATE MOFETIL HYDROCHLORIDE
     Indication: PRODUCT USED FOR UNKNOWN INDICATION
     Route: 065
  10. ZINC. [Concomitant]
     Active Substance: ZINC
     Indication: IMMUNODEFICIENCY
     Route: 048
     Dates: start: 202005
  11. AMIODARONE [Concomitant]
     Active Substance: AMIODARONE
     Indication: CARDIOVERSION
     Route: 048
     Dates: start: 202007
  12. DILTIAZEM. [Concomitant]
     Active Substance: DILTIAZEM
     Indication: CARDIAC DISORDER
     Route: 048
     Dates: start: 202001

REACTIONS (6)
  - Gastric haemorrhage [Unknown]
  - Pain [Unknown]
  - Product quality issue [Unknown]
  - Underdose [Unknown]
  - Off label use [Unknown]
  - Intentional product use issue [Unknown]

NARRATIVE: CASE EVENT DATE: 20200929
